FAERS Safety Report 5730110-8 (Version None)
Quarter: 2008Q2

REPORT INFORMATION
  Report Type: 
  Country: None (occurrence: None)
  Receive Date: 20080507
  Receipt Date: 20080428
  Transmission Date: 20081010
  Serious: Yes (Hospitalization, Other)
  Sender: FDA-Public Use
  Company Number: PHHY2008DK06759

PATIENT
  Sex: Female

DRUGS (4)
  1. CLOZAPINE [Suspect]
     Indication: SCHIZOPHRENIA
     Route: 048
  2. AKINETON [Suspect]
     Route: 048
  3. CLONAZEPAM [Suspect]
     Route: 048
  4. NOZINAN [Suspect]
     Route: 048

REACTIONS (10)
  - ABDOMINAL PAIN UPPER [None]
  - ANASTOMOTIC COMPLICATION [None]
  - CONSTIPATION [None]
  - DIARRHOEA [None]
  - FAECAL INCONTINENCE [None]
  - INTESTINAL PERFORATION [None]
  - QUALITY OF LIFE DECREASED [None]
  - SEPSIS [None]
  - SUICIDAL IDEATION [None]
  - SURGERY [None]
